FAERS Safety Report 4921544-X (Version None)
Quarter: 2006Q1

REPORT INFORMATION
  Report Type: 
  Country: None (occurrence: None)
  Receive Date: 20060224
  Receipt Date: 20060213
  Transmission Date: 20060701
  Serious: Yes (Death, Hospitalization, Other)
  Sender: FDA-Public Use
  Company Number: US-AVENTIS-200611473US

PATIENT
  Age: 69 Year
  Sex: Female

DRUGS (3)
  1. KETEK [Suspect]
     Indication: UPPER RESPIRATORY TRACT INFECTION
     Dosage: DOSE: UNKNOWN
     Dates: start: 20051204, end: 20051207
  2. ACETAMINOPHEN [Concomitant]
     Indication: OSTEOARTHRITIS
     Dosage: DOSE: 2-4 GRAMS/DAY
     Route: 048
  3. BACTRIM [Concomitant]
     Dosage: DOSE: UNK

REACTIONS (16)
  - ABDOMINAL PAIN [None]
  - ACUTE RESPIRATORY DISTRESS SYNDROME [None]
  - ALANINE AMINOTRANSFERASE INCREASED [None]
  - ASPARTATE AMINOTRANSFERASE INCREASED [None]
  - BLOOD ALBUMIN DECREASED [None]
  - BLOOD BILIRUBIN INCREASED [None]
  - CARDIAC FAILURE [None]
  - DUODENAL ULCER PERFORATION [None]
  - FLUID RETENTION [None]
  - HAEMORRHAGE [None]
  - HEPATIC CIRRHOSIS [None]
  - HEPATIC FAILURE [None]
  - HEPATITIS [None]
  - INTERNATIONAL NORMALISED RATIO INCREASED [None]
  - JAUNDICE [None]
  - RENAL FAILURE ACUTE [None]
